FAERS Safety Report 7270161-8 (Version None)
Quarter: 2011Q1

REPORT INFORMATION
  Report Type: 
  Country: None (occurrence: None)
  Receive Date: 20110202
  Receipt Date: 20110127
  Transmission Date: 20110831
  Serious: Yes (Hospitalization, Other)
  Sender: FDA-Public Use
  Company Number: DE-TEVA-264842GER

PATIENT
  Age: 83 Year
  Sex: Female
  Weight: 89 kg

DRUGS (2)
  1. DOXY-M-RATIOPHARM [Suspect]
     Route: 048
     Dates: start: 20101011, end: 20101019
  2. CEFUROXIM-FRESENIUS [Suspect]
     Route: 042
     Dates: start: 20101011, end: 20101019

REACTIONS (1)
  - PANCREATITIS ACUTE [None]
